FAERS Safety Report 11320064 (Version 1)
Quarter: 2015Q3

REPORT INFORMATION
  Report Type: Spontaneous
  Country: US (occurrence: None)
  Receive Date: 20150728
  Receipt Date: 20150728
  Transmission Date: 20151125
  Serious: Yes (Life-Threatening, Hospitalization)
  Sender: FDA-Public Use
  Company Number: None

PATIENT
  Age: 68 Year
  Sex: Male
  Weight: 91.5 kg

DRUGS (1)
  1. PAZOPANIB [Suspect]
     Active Substance: PAZOPANIB
     Indication: RENAL CELL CARCINOMA
     Route: 048
     Dates: start: 20150529, end: 20150710

REACTIONS (4)
  - Rash morbilliform [None]
  - Hepatotoxicity [None]
  - Drug-induced liver injury [None]
  - Hepatic enzyme increased [None]

NARRATIVE: CASE EVENT DATE: 20150709
